FAERS Safety Report 17073348 (Version 1)
Quarter: 2019Q4

REPORT INFORMATION
  Report Type: Spontaneous
  Country: US (occurrence: US)
  Receive Date: 20191126
  Receipt Date: 20191126
  Transmission Date: 20200122
  Serious: No
  Sender: FDA-Public Use
  Company Number: US-LUPIN PHARMACEUTICALS INC.-2018-08751

PATIENT

DRUGS (2)
  1. SUN CHLORELLA A [Concomitant]
     Indication: CONSTIPATION
     Dosage: UNK
     Route: 065
  2. GAVILAX [Suspect]
     Active Substance: POLYETHYLENE GLYCOL 3350
     Indication: CONSTIPATION
     Dosage: UNK
     Route: 065

REACTIONS (1)
  - Pain [Unknown]
